FAERS Safety Report 10136234 (Version 1)
Quarter: 2014Q2

REPORT INFORMATION
  Report Type: Spontaneous
  Country: DE (occurrence: DE)
  Receive Date: 20140429
  Receipt Date: 20140429
  Transmission Date: 20141212
  Serious: Yes (Hospitalization)
  Sender: FDA-Public Use
  Company Number: DE-AMGEN-DEUSP2014029716

PATIENT
  Age: 57 Year
  Sex: Male
  Weight: 109 kg

DRUGS (7)
  1. XGEVA [Suspect]
     Indication: PROSTATE CANCER
     Dosage: 120 MG, QMO
     Route: 030
     Dates: start: 20121023
  2. TORASEMID AL [Concomitant]
     Dosage: UNK UNK, QD
     Route: 048
  3. XIPAMID STADA [Concomitant]
     Dosage: 10 MG, BID
     Route: 048
  4. DICLAC                             /00372302/ [Concomitant]
     Dosage: 150 UNK, QD
     Route: 048
  5. JODTHYROX [Concomitant]
     Dosage: UNK UNK, QD
     Route: 048
  6. VIGANTOLETTEN [Concomitant]
     Dosage: UNK UNK, QD
     Route: 048
  7. LEVODOPA/BENSERAZID RATIOPHARM [Concomitant]
     Dosage: 100/25
     Route: 065

REACTIONS (5)
  - Restless legs syndrome [Not Recovered/Not Resolved]
  - Chest pain [Not Recovered/Not Resolved]
  - Dyspnoea [Not Recovered/Not Resolved]
  - Cardiomegaly [Unknown]
  - Incorrect route of drug administration [Unknown]
